FAERS Safety Report 4872233-1 (Version None)
Quarter: 2005Q4

REPORT INFORMATION
  Report Type: 
  Country: None (occurrence: None)
  Receive Date: 20051201
  Receipt Date: 20050727
  Transmission Date: 20060501
  Serious: No
  Sender: FDA-Public Use
  Company Number: 2005PV000765

PATIENT
  Age: 51 Year
  Sex: Female
  Weight: 117.4816 kg

DRUGS (9)
  1. BYETTA [Suspect]
     Indication: DIABETES MELLITUS NON-INSULIN-DEPENDENT
     Dosage: 5 MCG; BID; SC
     Route: 058
     Dates: start: 20050719
  2. PRINZIDE [Concomitant]
  3. GLUCOPHAGE [Concomitant]
  4. ZETIA [Concomitant]
  5. ASPIRIN [Concomitant]
  6. NOVOLIN [Concomitant]
  7. ZOCOR [Concomitant]
  8. LASIX [Concomitant]
  9. LOTENSIN [Concomitant]

REACTIONS (3)
  - ENERGY INCREASED [None]
  - PRE-EXISTING CONDITION IMPROVED [None]
  - THERAPEUTIC RESPONSE UNEXPECTED [None]
